FAERS Safety Report 4307658-6 (Version None)
Quarter: 2004Q1

REPORT INFORMATION
  Report Type: 
  Country: None (occurrence: None)
  Receive Date: 20040226
  Receipt Date: 20040213
  Transmission Date: 20041129
  Serious: Yes (Hospitalization)
  Sender: FDA-Public Use
  Company Number: FRWYE582416FEB04

PATIENT
  Age: 35 Year
  Sex: Male

DRUGS (6)
  1. NEORAL [Suspect]
     Indication: PROPHYLAXIS AGAINST TRANSPLANT REJECTION
     Dosage: 300 MG DAILY AT THE TIME OF THE EVENT ONSET, ORAL
     Route: 048
     Dates: start: 20030707
  2. APROVEL (IRBESARTAN, 0) [Suspect]
     Dosage: 75 MG 1X PER 1 DAY, ORAL
     Route: 048
     Dates: start: 20031223, end: 20040203
  3. APROVEL (IRBESARTAN, 0) [Suspect]
     Dosage: 75 MG 1X PER 1 DAY, ORAL
     Route: 048
     Dates: start: 20040201
  4. CELLCEPT [Suspect]
     Indication: PROPHYLAXIS AGAINST TRANSPLANT REJECTION
     Dosage: 2 G 1X PER 1 DAY, ORAL
     Route: 048
     Dates: start: 20030606
  5. KARDEGIC (ACETYLSALICYLATE LYSINE, 0) [Suspect]
     Dosage: 74 MG, 1X PER 1 DAY, ORAL
     Route: 048
     Dates: start: 20030723, end: 20040203
  6. KARDEGIC (ACETYLSALICYLATE LYSINE, 0) [Suspect]
     Dosage: 74 MG, 1X PER 1 DAY, ORAL
     Route: 048
     Dates: start: 20040201

REACTIONS (4)
  - DEHYDRATION [None]
  - GASTROENTERITIS [None]
  - METABOLIC ACIDOSIS [None]
  - RENAL FAILURE ACUTE [None]
